FAERS Safety Report 7599666-7 (Version None)
Quarter: 2011Q3

REPORT INFORMATION
  Report Type: 
  Country: None (occurrence: None)
  Receive Date: 20110711
  Receipt Date: 20110628
  Transmission Date: 20111222
  Serious: Yes (Other)
  Sender: FDA-Public Use
  Company Number: CA-ELI_LILLY_AND_COMPANY-CA201106008085

PATIENT

DRUGS (3)
  1. EVISTA [Concomitant]
  2. LORAZEPAM [Concomitant]
  3. ZYPREXA [Suspect]
     Dosage: 5 MG, EACH EVENING
     Dates: start: 20011025

REACTIONS (3)
  - BLOOD CHOLESTEROL INCREASED [None]
  - TYPE 2 DIABETES MELLITUS [None]
  - GLAUCOMA [None]
